FAERS Safety Report 8905701 (Version 2)
Quarter: 2012Q4

REPORT INFORMATION
  Report Type: 
  Country: JP (occurrence: JP)
  Receive Date: 20121109
  Receipt Date: 20121210
  Transmission Date: 20130627
  Serious: Yes (Other)
  Sender: FDA-Public Use
  Company Number: JP-ASTRAZENECA-2012SE76461

PATIENT
  Age: 20 Year
  Sex: Female
  Weight: 58 kg

DRUGS (6)
  1. PROPOFOL [Suspect]
     Dosage: 4mcg/mL
     Route: 042
  2. REMIFENTANIL HYDROCHLORIDE [Concomitant]
     Dosage: 3.5 mcg/kg/min
     Route: 042
  3. ATROPINE [Concomitant]
     Dosage: 0.5 mg, number of separate dosages unknown
     Route: 042
  4. ROCURONIUM BROMIDE [Concomitant]
     Indication: INDUCTION OF ANAESTHESIA
     Dosage: 40 mg, number of separate dosages unknown
     Route: 065
  5. NAPHAZOLINE NITRATE [Concomitant]
     Route: 045
  6. OXYGEN [Concomitant]
     Dosage: 6 L/min

REACTIONS (5)
  - Blood pressure increased [Recovering/Resolving]
  - Tachycardia [Recovering/Resolving]
  - Extrasystoles [Recovering/Resolving]
  - Ventricular hypokinesia [Recovering/Resolving]
  - Urticaria [Unknown]
